FAERS Safety Report 7988351-5 (Version None)
Quarter: 2011Q4

REPORT INFORMATION
  Report Type: 
  Country: None (occurrence: None)
  Receive Date: 20111216
  Receipt Date: 20111208
  Transmission Date: 20120403
  Serious: Yes (Hospitalization, Other)
  Sender: FDA-Public Use
  Company Number: US-AMGEN-USASP2011065314

PATIENT
  Age: 39 Year
  Sex: Male

DRUGS (1)
  1. EPOGEN [Suspect]
     Indication: RENAL FAILURE CHRONIC
     Dosage: 10000 IU, 3 TIMES/WK

REACTIONS (3)
  - ASTHENIA [None]
  - PYREXIA [None]
  - BLOOD PRODUCT TRANSFUSION DEPENDENT [None]
